FAERS Safety Report 7508333-7 (Version None)
Quarter: 2011Q2

REPORT INFORMATION
  Report Type: 
  Country: None (occurrence: None)
  Receive Date: 20110527
  Receipt Date: 20110523
  Transmission Date: 20111010
  Serious: No
  Sender: FDA-Public Use
  Company Number: US-PFIZER INC-2011090029

PATIENT
  Sex: Female
  Weight: 102 kg

DRUGS (2)
  1. ADVIL LIQUI-GELS [Suspect]
     Indication: SCIATICA
  2. ADVIL LIQUI-GELS [Suspect]
     Indication: ARTHROPATHY
     Dosage: 200 MG, AS NEEDED
     Route: 048
     Dates: start: 20110423, end: 20110425

REACTIONS (1)
  - DRUG INEFFECTIVE [None]
